FAERS Safety Report 4753758-6 (Version None)
Quarter: 2005Q3

REPORT INFORMATION
  Report Type: 
  Country: None (occurrence: None)
  Receive Date: 20050825
  Receipt Date: 20050822
  Transmission Date: 20060218
  Serious: Yes (Hospitalization)
  Sender: FDA-Public Use
  Company Number: 002#2#2005-00273

PATIENT
  Sex: Female

DRUGS (8)
  1. GLYCOLAX [Suspect]
     Indication: CONSTIPATION
     Dosage: 17G, 1 IN 1 D, ORAL
     Route: 048
     Dates: start: 20050701, end: 20050812
  2. VALSARTAN [Concomitant]
  3. DIOVAN HCT [Concomitant]
  4. AMLODIPINE [Concomitant]
  5. SERTRALINE HYDROCHLORIDE [Concomitant]
  6. ESOMEPRAZOLE [Concomitant]
  7. LEVOTHYROXINE SODIUM [Concomitant]
  8. MULTI-VITAMIN [Concomitant]

REACTIONS (4)
  - ANAEMIA [None]
  - DRUG DOSE OMISSION [None]
  - FAECES DISCOLOURED [None]
  - INFREQUENT BOWEL MOVEMENTS [None]
